FAERS Safety Report 8146897-3 (Version None)
Quarter: 2012Q1

REPORT INFORMATION
  Report Type: 
  Country: None (occurrence: None)
  Receive Date: 20120217
  Receipt Date: 20120209
  Transmission Date: 20120608
  Serious: Yes (Other)
  Sender: FDA-Public Use
  Company Number: US-ABBOTT-12P-163-0903561-00

PATIENT
  Sex: Male

DRUGS (2)
  1. TRILIPIX [Concomitant]
     Indication: BLOOD TRIGLYCERIDES INCREASED
  2. HUMIRA [Suspect]
     Indication: PSORIASIS

REACTIONS (1)
  - TRANSIENT ISCHAEMIC ATTACK [None]
